FAERS Safety Report 7965537-7 (Version None)
Quarter: 2011Q4

REPORT INFORMATION
  Report Type: 
  Country: None (occurrence: None)
  Receive Date: 20111206
  Receipt Date: 20111124
  Transmission Date: 20120403
  Serious: Yes (Hospitalization, Other)
  Sender: FDA-Public Use
  Company Number: 1102466

PATIENT
  Age: 17 Year
  Sex: Male
  Weight: 80 kg

DRUGS (2)
  1. KETAMINE HCL [Suspect]
     Indication: CHEST TUBE INSERTION
     Dosage: 20 MG MILLIGRAM(S),, INTRAVENOUS (NOT OTHERWISE SPECIFIED)
     Route: 042
     Dates: start: 20110829, end: 20110829
  2. MORPHINE [Concomitant]

REACTIONS (3)
  - TRISMUS [None]
  - LARYNGOSPASM [None]
  - APNOEA [None]
